FAERS Safety Report 16550793 (Version 1)
Quarter: 2019Q3

REPORT INFORMATION
  Report Type: Spontaneous
  Country: DE (occurrence: DE)
  Receive Date: 20190710
  Receipt Date: 20190710
  Transmission Date: 20191004
  Serious: Yes (Hospitalization)
  Sender: FDA-Public Use
  Company Number: DE-AMGEN-DEUSP2019108713

PATIENT
  Age: 64 Year
  Sex: Male
  Weight: 79.5 kg

DRUGS (14)
  1. CYCLOPHOSPHAMIDE. [Suspect]
     Active Substance: CYCLOPHOSPHAMIDE
     Indication: PRODUCT USED FOR UNKNOWN INDICATION
     Dosage: 750 MILLIGRAM/SQ. METER, LAST ADMINISTRATION 05-FEB-2018
     Route: 042
  2. COTRIM FORTE [Concomitant]
     Active Substance: SULFAMETHOXAZOLE\TRIMETHOPRIM
     Dosage: UNK, 3 TIMES/WK
     Route: 048
  3. BENZYDAMINE [Concomitant]
     Active Substance: BENZYDAMINE
     Dosage: 1.5 MILLIGRAM PER MILLILITRE, 1-1-1-1 SOLUTION
     Route: 048
  4. DOXORUBICIN [Suspect]
     Active Substance: DOXORUBICIN
     Indication: PRODUCT USED FOR UNKNOWN INDICATION
     Dosage: 50 MILLIGRAM/SQ. METER, LAST ADMINISTRATION 05-FEB-2018
     Route: 042
  5. ALPHA LIPOGAMMA [THIOCTIC ACID] [Concomitant]
     Dosage: 600 MILLIGRAM, 0-1-0
     Route: 048
  6. VINCRISTIN [Suspect]
     Active Substance: VINCRISTINE
     Indication: PRODUCT USED FOR UNKNOWN INDICATION
     Dosage: 2 MILLIGRAM ONE ON 01-DEC-2017
     Route: 042
  7. TADALAFIL. [Concomitant]
     Active Substance: TADALAFIL
     Dosage: 20 MILLIGRAM, 0-0-2
     Route: 048
  8. PANTOPRAZOL [Concomitant]
     Active Substance: PANTOPRAZOLE SODIUM
     Dosage: 40 MILLIGRAM, 1-0-0
     Route: 048
  9. FILGRASTIM [Suspect]
     Active Substance: FILGRASTIM
     Indication: PRODUCT USED FOR UNKNOWN INDICATION
     Dosage: UNK
     Route: 058
  10. RITUXIMAB. [Suspect]
     Active Substance: RITUXIMAB
     Indication: PRODUCT USED FOR UNKNOWN INDICATION
     Dosage: 375 MILLIGRAM/SQ. METER, LAST ADMINISTRATION 05-FEB-2018
     Route: 042
  11. FUROSEMIDE. [Concomitant]
     Active Substance: FUROSEMIDE
     Dosage: 40 MILLIGRAM, 1-0-0
     Route: 048
  12. PARACETAMOL [Concomitant]
     Active Substance: ACETAMINOPHEN
     Dosage: 2 GRAM
     Route: 048
     Dates: start: 20180211
  13. ACICLOVIR [Concomitant]
     Active Substance: ACYCLOVIR
     Dosage: 400 MILLIGRAM, 1-0-1
     Route: 048
  14. SPIRONOLACTON [Concomitant]
     Active Substance: SPIRONOLACTONE
     Dosage: 50 MILLIGRAM, 1-0-0
     Route: 048

REACTIONS (6)
  - Erysipelas [Unknown]
  - Diarrhoea [Unknown]
  - Paraesthesia [Unknown]
  - Pyrexia [Unknown]
  - Abdominal distension [Unknown]
  - Dry mouth [Unknown]
